FAERS Safety Report 19984981 (Version 1)
Quarter: 2021Q4

REPORT INFORMATION
  Report Type: Spontaneous
  Country: FR (occurrence: FR)
  Receive Date: 20211022
  Receipt Date: 20211022
  Transmission Date: 20220303
  Serious: Yes (Death, Life-Threatening, Hospitalization)
  Sender: FDA-Public Use
  Company Number: None

PATIENT
  Age: 61 Year
  Sex: Male

DRUGS (9)
  1. DEXAMETHASONE [Suspect]
     Active Substance: DEXAMETHASONE
     Indication: Meningitis Escherichia
     Dosage: 10 MILLIGRAM, Q6H
     Route: 065
  2. DEXAMETHASONE [Suspect]
     Active Substance: DEXAMETHASONE
     Indication: Evidence based treatment
  3. IVERMECTIN [Suspect]
     Active Substance: IVERMECTIN
     Indication: Strongyloidiasis
     Dosage: 200 MICROGRAM/KILOGRAM, QD (PATIENT WAS TREATED WITH IVERMECTIN 200 MCG/KG ORALLY...
     Route: 048
  4. IVERMECTIN [Suspect]
     Active Substance: IVERMECTIN
     Indication: Disseminated strongyloidiasis
  5. CEFOTAXIME [Concomitant]
     Active Substance: CEFOTAXIME SODIUM
     Indication: Evidence based treatment
     Dosage: 300 MILLIGRAM/KILOGRAM, QD
     Route: 065
  6. CEFOTAXIME [Concomitant]
     Active Substance: CEFOTAXIME SODIUM
     Indication: Meningitis Escherichia
  7. AMOXICILLIN [Concomitant]
     Active Substance: AMOXICILLIN
     Indication: Evidence based treatment
     Dosage: 200 MILLIGRAM/KILOGRAM, QD
     Route: 065
  8. AMOXICILLIN [Concomitant]
     Active Substance: AMOXICILLIN
     Indication: Meningitis Escherichia
  9. ACYCLOVIR [Concomitant]
     Active Substance: ACYCLOVIR
     Indication: Evidence based treatment
     Dosage: 10 MILLIGRAM/KILOGRAM, QD
     Route: 065

REACTIONS (13)
  - Multiple organ dysfunction syndrome [Fatal]
  - Strongyloidiasis [Fatal]
  - Nervous system disorder [Fatal]
  - Paradoxical drug reaction [Fatal]
  - Disseminated strongyloidiasis [Fatal]
  - Treatment failure [Fatal]
  - Coma [Unknown]
  - Acute respiratory failure [Recovering/Resolving]
  - Haemoptysis [Recovering/Resolving]
  - Pulmonary alveolar haemorrhage [Recovering/Resolving]
  - Acute respiratory distress syndrome [Recovering/Resolving]
  - Haemodynamic instability [Recovering/Resolving]
  - Purpura [Unknown]
